FAERS Safety Report 8513463-7 (Version None)
Quarter: 2012Q3

REPORT INFORMATION
  Report Type: 
  Country: None (occurrence: None)
  Receive Date: 20120717
  Receipt Date: 20120706
  Transmission Date: 20120928
  Serious: No
  Sender: FDA-Public Use
  Company Number: US-BIOGENIDEC-2012BI024007

PATIENT
  Sex: Female

DRUGS (1)
  1. TYSABRI [Suspect]
     Indication: MULTIPLE SCLEROSIS
     Route: 042
     Dates: start: 20090727, end: 20120521

REACTIONS (8)
  - HEADACHE [None]
  - RESPIRATORY DISORDER [None]
  - OEDEMA PERIPHERAL [None]
  - PYREXIA [None]
  - MALAISE [None]
  - RASH [None]
  - WHITE BLOOD CELL COUNT INCREASED [None]
  - INCREASED UPPER AIRWAY SECRETION [None]
